FAERS Safety Report 5054273-5 (Version None)
Quarter: 2006Q3

REPORT INFORMATION
  Report Type: 
  Country: None (occurrence: None)
  Receive Date: 20060713
  Receipt Date: 20060627
  Transmission Date: 20061208
  Serious: Yes (Hospitalization, Other)
  Sender: FDA-Public Use
  Company Number: PHBS2006US09801

PATIENT
  Age: 65 Year
  Sex: Male

DRUGS (3)
  1. CYCLOSPORINE [Suspect]
     Indication: HEART TRANSPLANT
     Dosage: 25 MG
  2. AZATHIOPRINE [Suspect]
     Indication: HEART TRANSPLANT
     Dosage: 25 MG, QD
  3. PREDNISONE (NGX) (PREDNISONE) [Suspect]
     Indication: HEART TRANSPLANT
     Dosage: 10 MG, QD

REACTIONS (15)
  - BLOOD CREATININE INCREASED [None]
  - CELLULITIS [None]
  - ERYTHEMA [None]
  - FLUID OVERLOAD [None]
  - FUNGAL SKIN INFECTION [None]
  - HEART TRANSPLANT REJECTION [None]
  - INFLAMMATION [None]
  - LIMB INJURY [None]
  - MYCOBACTERIUM ABSCESSUS INFECTION [None]
  - OEDEMA PERIPHERAL [None]
  - PANNICULITIS [None]
  - PITTING OEDEMA [None]
  - RASH PAPULAR [None]
  - SKIN INFLAMMATION [None]
  - THERAPY NON-RESPONDER [None]
